FAERS Safety Report 14620314 (Version 1)
Quarter: 2018Q1

REPORT INFORMATION
  Report Type: Report from Study
  Country: PL (occurrence: PL)
  Receive Date: 20180309
  Receipt Date: 20180309
  Transmission Date: 20180509
  Serious: Yes (Life-Threatening)
  Sender: FDA-Public Use
  Company Number: PL-CHIESI USA INC.-PL-2018CHI000054

PATIENT
  Age: 0 Day
  Sex: Male
  Weight: .8 kg

DRUGS (2)
  1. CUROSURF [Suspect]
     Active Substance: PORACTANT ALFA
     Indication: NEONATAL RESPIRATORY DISTRESS SYNDROME
     Dosage: UNK
     Route: 039
     Dates: start: 20180219
  2. CAFFEINE CITRATE. [Concomitant]
     Active Substance: CAFFEINE CITRATE
     Indication: NEONATAL RESPIRATORY DISTRESS SYNDROME
     Dosage: UNK
     Dates: start: 20180219

REACTIONS (3)
  - Gastrooesophageal reflux disease [Unknown]
  - Neonatal hypoxia [Unknown]
  - Infantile apnoea [Unknown]

NARRATIVE: CASE EVENT DATE: 20180219
